FAERS Safety Report 16939800 (Version 9)
Quarter: 2020Q3

REPORT INFORMATION
  Report Type: Report from Study
  Country: US (occurrence: US)
  Receive Date: 20191021
  Receipt Date: 20200824
  Transmission Date: 20201102
  Serious: Yes (Other)
  Sender: FDA-Public Use
  Company Number: US-TESAROUBC-2018-TSO2117-US

PATIENT
  Sex: Female

DRUGS (8)
  1. NIRAPARIB [Suspect]
     Active Substance: NIRAPARIB
     Dosage: 100 MG, DAILY IN THE EVENING WITH FOOD.
     Route: 048
     Dates: start: 20181126, end: 20190309
  2. NIRAPARIB [Suspect]
     Active Substance: NIRAPARIB
     Dosage: 100 MG, QD
     Route: 048
  3. NIRAPARIB [Suspect]
     Active Substance: NIRAPARIB
     Dosage: 100 MG, QD
  4. NIRAPARIB [Suspect]
     Active Substance: NIRAPARIB
     Indication: FALLOPIAN TUBE CANCER
     Dosage: 300 MG, UNK
     Route: 048
     Dates: start: 20181031, end: 20181109
  5. NIRAPARIB [Suspect]
     Active Substance: NIRAPARIB
     Dosage: 100 MG, QD PM
     Route: 048
     Dates: start: 20181111, end: 20181119
  6. NIRAPARIB [Suspect]
     Active Substance: NIRAPARIB
     Dosage: 100 MG, PM WITH OR WITHOUT FOOD
     Route: 048
     Dates: start: 20190319
  7. NIRAPARIB [Suspect]
     Active Substance: NIRAPARIB
     Dosage: 100 MG, QPM WITH FOOD
     Route: 048
  8. NIRAPARIB [Suspect]
     Active Substance: NIRAPARIB
     Dosage: 100 MG, QPM WITH FOOD
     Route: 048

REACTIONS (36)
  - Musculoskeletal discomfort [Not Recovered/Not Resolved]
  - Palpitations [Recovered/Resolved]
  - Dysphagia [Not Recovered/Not Resolved]
  - Sciatica [Recovering/Resolving]
  - Fatigue [Not Recovered/Not Resolved]
  - Nausea [Unknown]
  - Vomiting [Unknown]
  - Abdominal discomfort [Recovered/Resolved]
  - Product use complaint [Unknown]
  - Hyperkeratosis [Not Recovered/Not Resolved]
  - Dyspepsia [Recovered/Resolved]
  - Blood potassium decreased [Recovered/Resolved]
  - Illness [Unknown]
  - Blood magnesium decreased [Not Recovered/Not Resolved]
  - Arthropathy [Not Recovered/Not Resolved]
  - Mobility decreased [Not Recovered/Not Resolved]
  - Fluid retention [Not Recovered/Not Resolved]
  - Ingrowing nail [Not Recovered/Not Resolved]
  - Alopecia [Unknown]
  - Intentional dose omission [Unknown]
  - Neuropathy peripheral [Not Recovered/Not Resolved]
  - Weight increased [Unknown]
  - Arthralgia [Recovered/Resolved]
  - Product dose omission issue [Unknown]
  - Drug monitoring procedure incorrectly performed [Unknown]
  - Pain [Unknown]
  - Vision blurred [Recovered/Resolved]
  - Memory impairment [Unknown]
  - Hypertension [Not Recovered/Not Resolved]
  - Cataract operation [Unknown]
  - Peripheral swelling [Not Recovered/Not Resolved]
  - Platelet count decreased [Not Recovered/Not Resolved]
  - Constipation [Recovering/Resolving]
  - Vitreous floaters [Recovered/Resolved]
  - Diarrhoea [Recovered/Resolved]
  - Muscle spasms [Not Recovered/Not Resolved]
